FAERS Safety Report 8621910-5 (Version None)
Quarter: 2012Q3

REPORT INFORMATION
  Report Type: 
  Country: None (occurrence: None)
  Receive Date: 20120822
  Receipt Date: 20120822
  Transmission Date: 20120928
  Serious: Yes (Other)
  Sender: FDA-Public Use
  Company Number: None

PATIENT
  Sex: Female
  Weight: 68.0396 kg

DRUGS (1)
  1. GLIMEPIRIDE [Suspect]
     Indication: DIABETES MELLITUS
     Dosage: 1 TABLET -2 MG- TWICE DAILY PO
     Route: 048
     Dates: start: 20120120, end: 20120620

REACTIONS (8)
  - BLOOD GLUCOSE DECREASED [None]
  - PHOTOPSIA [None]
  - FRUSTRATION [None]
  - VISUAL ACUITY REDUCED [None]
  - ABDOMINAL PAIN UPPER [None]
  - DISTURBANCE IN ATTENTION [None]
  - MUSCLE SPASMS [None]
  - VISION BLURRED [None]
